FAERS Safety Report 10262655 (Version 1)
Quarter: 2014Q2

REPORT INFORMATION
  Report Type: Report from Study
  Country: US (occurrence: US)
  Receive Date: 20140626
  Receipt Date: 20140626
  Transmission Date: 20141212
  Serious: Yes (Hospitalization)
  Sender: FDA-Public Use
  Company Number: US-PURDUE-USA-2014-0115119

PATIENT
  Sex: Female

DRUGS (2)
  1. OXY CR TAB [Suspect]
     Indication: OSTEOARTHRITIS
     Dosage: 80 MG, UNK
     Route: 048
     Dates: start: 20140602
  2. OXY CR TAB [Suspect]
     Dosage: UNK
     Route: 048
     Dates: start: 2008

REACTIONS (7)
  - Hypothyroidism [Unknown]
  - Bacterial infection [Unknown]
  - Urinary tract infection [Unknown]
  - Oxygen saturation decreased [Unknown]
  - Blood pressure fluctuation [Unknown]
  - Diarrhoea [Unknown]
  - Asthenia [Unknown]
